FAERS Safety Report 25266858 (Version 1)
Quarter: 2025Q2

REPORT INFORMATION
  Report Type: Spontaneous
  Country: PE (occurrence: PE)
  Receive Date: 20250505
  Receipt Date: 20250505
  Transmission Date: 20250717
  Serious: Yes (Other)
  Sender: ROCHE
  Company Number: PE-ROCHE-10000267958

PATIENT

DRUGS (1)
  1. ALECTINIB [Suspect]
     Active Substance: ALECTINIB
     Indication: Lung neoplasm malignant
     Route: 065
     Dates: end: 202501

REACTIONS (3)
  - Metastases to central nervous system [Unknown]
  - Metastases to lung [Unknown]
  - Blood bilirubin increased [Unknown]
